FAERS Safety Report 6438077-4 (Version None)
Quarter: 2009Q4

REPORT INFORMATION
  Report Type: 
  Country: None (occurrence: None)
  Receive Date: 20091112
  Receipt Date: 20091105
  Transmission Date: 20100525
  Serious: Yes (Hospitalization)
  Sender: FDA-Public Use
  Company Number: TR-ELI_LILLY_AND_COMPANY-TR200911001488

PATIENT
  Age: 50 Year
  Sex: Female

DRUGS (4)
  1. HUMALOG [Suspect]
     Indication: DIABETES MELLITUS
     Dosage: 10 U, EACH MORNING
     Route: 058
  2. HUMALOG [Suspect]
     Dosage: 10 U, EACH NOON
     Route: 058
  3. HUMALOG [Suspect]
     Dosage: 10 U, EACH EVENING
     Route: 058
  4. LANTUS [Concomitant]
     Indication: DIABETES MELLITUS
     Dosage: 40 U, UNKNOWN
     Route: 058

REACTIONS (6)
  - ABDOMINAL DISTENSION [None]
  - AXILLARY PAIN [None]
  - BLOOD GLUCOSE INCREASED [None]
  - PAIN IN EXTREMITY [None]
  - WEIGHT INCREASED [None]
  - WOUND [None]
